FAERS Safety Report 7465559-9 (Version None)
Quarter: 2011Q2

REPORT INFORMATION
  Report Type: 
  Country: None (occurrence: None)
  Receive Date: 20110509
  Receipt Date: 20110502
  Transmission Date: 20111010
  Serious: Yes (Hospitalization)
  Sender: FDA-Public Use
  Company Number: FR-PURDUE-GBR-2011-0008135

PATIENT
  Sex: Female

DRUGS (2)
  1. OXYCODONE HYDROCHLORIDE [Suspect]
     Indication: MUSCULOSKELETAL PAIN
     Dosage: 5 MG, PRN
     Route: 048
     Dates: start: 20100101, end: 20100517
  2. FENTANYL [Suspect]
     Indication: MUSCULOSKELETAL PAIN
     Dosage: 0.333 DF, Q3D
     Route: 062
     Dates: start: 20100101, end: 20100517

REACTIONS (8)
  - CONFUSIONAL STATE [None]
  - AGITATION [None]
  - OVERDOSE [None]
  - HYPOTHERMIA [None]
  - COMA SCALE ABNORMAL [None]
  - HYPERTENSION [None]
  - TACHYCARDIA [None]
  - BRADYPNOEA [None]
